FAERS Safety Report 17583906 (Version 1)
Quarter: 2020Q1

REPORT INFORMATION
  Report Type: Report from Study
  Country: US (occurrence: US)
  Receive Date: 20200326
  Receipt Date: 20200326
  Transmission Date: 20200409
  Serious: Yes (Other)
  Sender: FDA-Public Use
  Company Number: US-GLAXOSMITHKLINE-US2019TSO176560

PATIENT
  Sex: Female
  Weight: 112 kg

DRUGS (3)
  1. NIRAPARIB [Suspect]
     Active Substance: NIRAPARIB
     Dosage: 100 MG DAILY
     Route: 048
     Dates: start: 20191102
  2. NIRAPARIB [Suspect]
     Active Substance: NIRAPARIB
     Dosage: 100 MG, QD
     Route: 048
     Dates: end: 20200319
  3. NIRAPARIB [Suspect]
     Active Substance: NIRAPARIB
     Indication: MALIGNANT PERITONEAL NEOPLASM
     Dosage: 200 MG, QPM WITH FOOD
     Route: 048
     Dates: start: 20190912, end: 20191011

REACTIONS (10)
  - Abdominal discomfort [Unknown]
  - Dyspepsia [Unknown]
  - Depressed mood [Unknown]
  - Recurrent cancer [Unknown]
  - Platelet count decreased [Unknown]
  - Depression [Unknown]
  - Abdominal distension [Unknown]
  - Arthralgia [Unknown]
  - Constipation [Unknown]
  - Anxiety [Unknown]
